FAERS Safety Report 12217752 (Version 1)
Quarter: 2016Q1

REPORT INFORMATION
  Report Type: Spontaneous
  Country: US (occurrence: None)
  Receive Date: 20160328
  Receipt Date: 20160328
  Transmission Date: 20160526
  Serious: No
  Sender: FDA-Public Use
  Company Number: None

PATIENT
  Age: 59 Year
  Sex: Male

DRUGS (1)
  1. SPRYCEL [Suspect]
     Active Substance: DASATINIB
     Indication: LEUKAEMIA
     Route: 048
     Dates: start: 20150310

REACTIONS (13)
  - Insomnia [None]
  - Bone pain [None]
  - Pain in extremity [None]
  - Cough [None]
  - Influenza like illness [None]
  - Heart rate irregular [None]
  - Pyrexia [None]
  - Migraine [None]
  - Diarrhoea [None]
  - Fatigue [None]
  - Headache [None]
  - Abdominal pain upper [None]
  - Dyspnoea [None]

NARRATIVE: CASE EVENT DATE: 20150603
